FAERS Safety Report 9462809 (Version 1)
Quarter: 2013Q3

REPORT INFORMATION
  Report Type: Spontaneous
  Country: US (occurrence: US)
  Receive Date: 20130816
  Receipt Date: 20130816
  Transmission Date: 20140515
  Serious: Yes (Disabling, Other)
  Sender: FDA-Public Use
  Company Number: US-ASTRAZENECA-2013SE62903

PATIENT
  Age: 41 Year
  Sex: Female
  Weight: 90.7 kg

DRUGS (3)
  1. NEXIUM [Suspect]
     Indication: HYPERCHLORHYDRIA
     Route: 048
     Dates: start: 201306
  2. NEXIUM [Suspect]
     Indication: DYSPEPSIA
     Route: 048
     Dates: start: 201306
  3. OMEPRAZOLE [Suspect]
     Indication: HYPERCHLORHYDRIA
     Dosage: MIGHT HAVE BEEN 20 OR 40 MG
     Route: 048
     Dates: start: 2012, end: 2013

REACTIONS (29)
  - Activities of daily living impaired [Unknown]
  - Paralysis [Recovering/Resolving]
  - Mobility decreased [Unknown]
  - Iron deficiency anaemia [Unknown]
  - Impaired work ability [Unknown]
  - Adverse event [Unknown]
  - Aphagia [Unknown]
  - Pain [Unknown]
  - Memory impairment [Unknown]
  - Abdominal distension [Unknown]
  - Coeliac disease [Unknown]
  - Muscle spasms [Unknown]
  - Hiatus hernia [Unknown]
  - Haemorrhoids [Unknown]
  - Arthritis [Unknown]
  - Gastrooesophageal reflux disease [Unknown]
  - Pain in extremity [Unknown]
  - Stress [Unknown]
  - Gastroenteritis viral [Unknown]
  - Gallbladder disorder [Unknown]
  - Arthralgia [Recovering/Resolving]
  - Arthralgia [Unknown]
  - Diarrhoea [Unknown]
  - Malaise [Unknown]
  - Vomiting [Unknown]
  - Hyperhidrosis [Unknown]
  - Nausea [Unknown]
  - Abdominal pain upper [Unknown]
  - Drug dose omission [Unknown]
